FAERS Safety Report 6920962-8 (Version None)
Quarter: 2010Q3

REPORT INFORMATION
  Report Type: 
  Country: None (occurrence: None)
  Receive Date: 20100812
  Receipt Date: 20100802
  Transmission Date: 20110219
  Serious: Yes (Other)
  Sender: FDA-Public Use
  Company Number: US-PFIZER INC-2010097542

PATIENT
  Sex: Male

DRUGS (1)
  1. DEPO-PROVERA [Suspect]
     Route: 050

REACTIONS (1)
  - INJURY [None]
